FAERS Safety Report 10982106 (Version 18)
Quarter: 2015Q4

REPORT INFORMATION
  Report Type: Report from Study
  Country: CA (occurrence: CA)
  Receive Date: 20150403
  Receipt Date: 20151008
  Transmission Date: 20160304
  Serious: Yes (Hospitalization, Other)
  Sender: FDA-Public Use
  Company Number: CA-ROCHE-1560075

PATIENT
  Age: 41 Year
  Sex: Female
  Weight: 98 kg

DRUGS (11)
  1. NAPROXEN. [Concomitant]
     Active Substance: NAPROXEN
  2. PRISTIQ EXTENDED RELEASE [Concomitant]
     Active Substance: DESVENLAFAXINE SUCCINATE
  3. TAXOTERE [Suspect]
     Active Substance: DOCETAXEL
     Indication: BREAST CANCER METASTATIC
     Route: 065
     Dates: start: 201407
  4. NEULASTA [Concomitant]
     Active Substance: PEGFILGRASTIM
  5. LOPERAMIDE [Concomitant]
     Active Substance: LOPERAMIDE
  6. METOCLOPRAMIDE. [Concomitant]
     Active Substance: METOCLOPRAMIDE
  7. ACETAMINOPHEN. [Concomitant]
     Active Substance: ACETAMINOPHEN
  8. TAXOL [Suspect]
     Active Substance: PACLITAXEL
     Indication: PRODUCT USED FOR UNKNOWN INDICATION
     Dosage: UNKNOWN STOP DATE
     Route: 065
     Dates: start: 20150218
  9. HERCEPTIN [Suspect]
     Active Substance: TRASTUZUMAB
     Indication: BREAST CANCER METASTATIC
     Route: 065
     Dates: start: 20150218
  10. PERJETA [Suspect]
     Active Substance: PERTUZUMAB
     Indication: HER-2 POSITIVE BREAST CANCER
     Route: 042
     Dates: start: 20150429
  11. PERJETA [Suspect]
     Active Substance: PERTUZUMAB
     Route: 042
     Dates: start: 20150604, end: 20150820

REACTIONS (26)
  - Red blood cell count decreased [Unknown]
  - Red cell distribution width increased [Unknown]
  - Protein total decreased [Unknown]
  - Blood creatinine decreased [Unknown]
  - Spinal fracture [Unknown]
  - Platelet count decreased [Not Recovered/Not Resolved]
  - Pneumonia [Recovering/Resolving]
  - Wound [Not Recovered/Not Resolved]
  - Urinary tract infection [Not Recovered/Not Resolved]
  - Weight decreased [Not Recovered/Not Resolved]
  - Haemoglobin decreased [Not Recovered/Not Resolved]
  - Blood calcium decreased [Unknown]
  - Blood disorder [Unknown]
  - Lymphocyte count decreased [Unknown]
  - Pleural effusion [Not Recovered/Not Resolved]
  - Infusion related reaction [Unknown]
  - Blood magnesium decreased [Unknown]
  - Blood lactate dehydrogenase increased [Unknown]
  - Haematocrit decreased [Unknown]
  - Hypotension [Unknown]
  - White blood cell count increased [Unknown]
  - Neutrophil count increased [Not Recovered/Not Resolved]
  - Oxygen saturation decreased [Unknown]
  - Blood bilirubin increased [Unknown]
  - Fatigue [Not Recovered/Not Resolved]
  - Blood alkaline phosphatase increased [Unknown]

NARRATIVE: CASE EVENT DATE: 2015
